FAERS Safety Report 8341330-0 (Version None)
Quarter: 2012Q2

REPORT INFORMATION
  Report Type: 
  Country: None (occurrence: None)
  Receive Date: 20120502
  Receipt Date: 20120424
  Transmission Date: 20120825
  Serious: Yes (Death, Hospitalization)
  Sender: FDA-Public Use
  Company Number: DAV-AE-MTX-12-31

PATIENT
  Age: 69 Year
  Sex: Female

DRUGS (4)
  1. ENBREL [Suspect]
     Indication: RHEUMATOID ARTHRITIS
     Dosage: 25MG,WEEKLY,SUBCUTANEOUS
     Route: 058
     Dates: start: 20090710, end: 20111213
  2. RHEUMATREX [Suspect]
     Indication: RHEUMATOID ARTHRITIS
     Dosage: 2MG, 3X/WEEK, ORAL
     Route: 048
     Dates: start: 20080508, end: 20090203
  3. PREDNISOLONE [Concomitant]
  4. VOLTAREN [Concomitant]

REACTIONS (3)
  - PANCREATIC CARCINOMA [None]
  - HEPATIC FUNCTION ABNORMAL [None]
  - ARTHRITIS [None]
